FAERS Safety Report 15248139 (Version 4)
Quarter: 2020Q1

REPORT INFORMATION
  Report Type: Spontaneous
  Country: US (occurrence: US)
  Receive Date: 20180807
  Receipt Date: 20200210
  Transmission Date: 20200409
  Serious: No
  Sender: FDA-Public Use
  Company Number: US-ASTRAZENECA-2018SE95549

PATIENT
  Age: 25618 Day
  Sex: Male
  Weight: 94.3 kg

DRUGS (3)
  1. BYDUREON BCISE [Suspect]
     Active Substance: EXENATIDE
     Indication: TYPE 2 DIABETES MELLITUS
     Route: 058
     Dates: start: 20180615
  2. BYDUREON [Suspect]
     Active Substance: EXENATIDE
     Route: 065
  3. LINZESS [Concomitant]
     Active Substance: LINACLOTIDE

REACTIONS (14)
  - Decreased appetite [Unknown]
  - Device leakage [Unknown]
  - Injection site mass [Not Recovered/Not Resolved]
  - Injection site pruritus [Unknown]
  - Nasopharyngitis [Unknown]
  - Injection site nodule [Recovering/Resolving]
  - Weight decreased [Unknown]
  - Injection site pain [Unknown]
  - Wrong technique in device usage process [Unknown]
  - Glycosylated haemoglobin increased [Unknown]
  - Intentional device misuse [Unknown]
  - Incorrect dose administered by device [Unknown]
  - Blood glucose increased [Unknown]
  - Injection site bruising [Not Recovered/Not Resolved]

NARRATIVE: CASE EVENT DATE: 20200117
